FAERS Safety Report 9078950 (Version 1)
Quarter: 2013Q1

REPORT INFORMATION
  Report Type: Report from Study
  Country: US (occurrence: US)
  Receive Date: 20130130
  Receipt Date: 20130130
  Transmission Date: 20140127
  Serious: No
  Sender: FDA-Public Use
  Company Number: US-ABBOTT-12P-163-0962278-00

PATIENT
  Age: 25 Year
  Sex: Female

DRUGS (9)
  1. HUMIRA 40 MG/0.8 ML PEN [Suspect]
     Indication: CROHN^S DISEASE
     Dosage: LOADING DOSE
     Dates: start: 20120710, end: 20120710
  2. HUMIRA 40 MG/0.8 ML PEN [Suspect]
     Dosage: LOADING DOSE
     Dates: start: 20120724, end: 20120724
  3. HUMIRA 40 MG/0.8 ML PEN [Suspect]
  4. ACYCLOVIR [Concomitant]
     Indication: HERPES ZOSTER
     Dosage: BEFORE HUMIRA PEN INJECTION
  5. ACYCLOVIR [Concomitant]
     Dosage: 5 DAYS AFTER HUMIRA PEN INJECTION
  6. PENTASA [Concomitant]
     Indication: CROHN^S DISEASE
  7. ENTOCORT [Concomitant]
     Indication: CROHN^S DISEASE
     Dosage: 3 CAPSULES DAILY
  8. IRON [Concomitant]
     Indication: MINERAL SUPPLEMENTATION
  9. PRENATAL VITAMINS [Concomitant]
     Indication: VITAMIN SUPPLEMENTATION

REACTIONS (2)
  - Contusion [Recovering/Resolving]
  - Injection site pain [Unknown]
